FAERS Safety Report 5761993-3 (Version None)
Quarter: 2008Q2

REPORT INFORMATION
  Report Type: 
  Country: None (occurrence: None)
  Receive Date: 20080603
  Receipt Date: 20080521
  Transmission Date: 20081010
  Serious: Yes (Other)
  Sender: FDA-Public Use
  Company Number: GXKR2008GB04685

PATIENT
  Sex: Female

DRUGS (3)
  1. DIAZEPAM [Suspect]
  2. WARFARIN SODIUM [Suspect]
  3. LYRICA [Suspect]
     Indication: AUTONOMIC NEUROPATHY
     Dosage: 150 MG, QID, ORAL
     Route: 048

REACTIONS (8)
  - DEPENDENCE [None]
  - DRUG INTERACTION [None]
  - DYSARTHRIA [None]
  - FEELING ABNORMAL [None]
  - FEELING COLD [None]
  - MOVEMENT DISORDER [None]
  - MYALGIA [None]
  - SOMNOLENCE [None]
